FAERS Safety Report 16592260 (Version 2)
Quarter: 2019Q4

REPORT INFORMATION
  Report Type: Other
  Country: CA (occurrence: CA)
  Receive Date: 20190718
  Receipt Date: 20191219
  Transmission Date: 20200122
  Serious: Yes (Other)
  Sender: FDA-Public Use
  Company Number: CA-BECTON DICKINSON-2019BDN00271

PATIENT
  Age: 42 Year
  Sex: Female
  Weight: 81 kg

DRUGS (27)
  1. METHOTREXATE. [Suspect]
     Active Substance: METHOTREXATE
     Dosage: UNK
  2. ORENCIA [Suspect]
     Active Substance: ABATACEPT
     Dosage: UNK
  3. PANTOPRAZOLE SODIUM ANHYDROUS [Concomitant]
     Active Substance: PANTOPRAZOLE SODIUM ANHYDROUS
  4. PANTOPRAZOLE SODIUM FOR INJECTION [Concomitant]
     Active Substance: PANTOPRAZOLE SODIUM
     Route: 042
  5. REACTINE [Concomitant]
  6. CIMZIA [Suspect]
     Active Substance: CERTOLIZUMAB PEGOL
     Indication: RHEUMATOID ARTHRITIS
     Dosage: 400 MG
     Route: 058
  7. OXYCODONE TEREPHTHALATE [Suspect]
     Active Substance: OXYCODONE TEREPHTHALATE
     Dosage: UNK
  8. DESOGESTREL + ETHINYL ESTRADIOL [Concomitant]
  9. ZOPICLONE [Concomitant]
     Active Substance: ZOPICLONE
  10. ACETAMINOPHEN. [Suspect]
     Active Substance: ACETAMINOPHEN
     Dosage: UNK
  11. OXYCODONE [Suspect]
     Active Substance: OXYCODONE
     Dosage: UNK
  12. IBUPROFEN. [Concomitant]
     Active Substance: IBUPROFEN
  13. CHLORHEXIDINE [Suspect]
     Active Substance: CHLORHEXIDINE
     Dosage: UNK
  14. ENBREL [Suspect]
     Active Substance: ETANERCEPT
     Indication: RHEUMATOID ARTHRITIS
     Dosage: UNK
     Route: 058
  15. ERGOCALCIFEROL. [Concomitant]
     Active Substance: ERGOCALCIFEROL
  16. PANTOPRAZOLE [Concomitant]
     Active Substance: PANTOPRAZOLE
  17. TYLENOL [Concomitant]
     Active Substance: ACETAMINOPHEN
  18. CHLORAPREP [Suspect]
     Active Substance: CHLORHEXIDINE GLUCONATE\ISOPROPYL ALCOHOL
     Indication: INFECTION PROPHYLAXIS
     Route: 061
  19. ACTEMRA [Suspect]
     Active Substance: TOCILIZUMAB
     Dosage: UNK
  20. LEFLUNOMIDE. [Suspect]
     Active Substance: LEFLUNOMIDE
     Dosage: UNK
  21. HYDROXYCHLOROQUINE [Concomitant]
     Active Substance: HYDROXYCHLOROQUINE
  22. SIMPONI [Suspect]
     Active Substance: GOLIMUMAB
     Dosage: UNK
     Route: 058
  23. ARAVA [Concomitant]
     Active Substance: LEFLUNOMIDE
  24. PANTOPRAZOLE SODIUM. [Concomitant]
     Active Substance: PANTOPRAZOLE SODIUM
  25. PREDNISONE. [Concomitant]
     Active Substance: PREDNISONE
  26. VENTOLIN [Concomitant]
     Active Substance: ALBUTEROL SULFATE
  27. VITAMIN C [Concomitant]
     Active Substance: ASCORBIC ACID

REACTIONS (20)
  - Lower respiratory tract infection [Unknown]
  - Ear pain [Unknown]
  - Headache [Unknown]
  - Night sweats [Unknown]
  - Body temperature increased [Unknown]
  - Diarrhoea [Unknown]
  - Peripheral swelling [Unknown]
  - Rash [Unknown]
  - Sinusitis [Unknown]
  - Asthenia [Unknown]
  - Joint swelling [Unknown]
  - Muscle spasticity [Unknown]
  - Back pain [Unknown]
  - Pain [Unknown]
  - Urticaria [Unknown]
  - Pruritus [Unknown]
  - Abdominal pain upper [Unknown]
  - Respiratory disorder [Unknown]
  - Insomnia [Unknown]
  - Vomiting [Unknown]
